FAERS Safety Report 9121500 (Version 1)
Quarter: 2013Q1

REPORT INFORMATION
  Report Type: Spontaneous
  Country: US (occurrence: US)
  Receive Date: 20130108
  Receipt Date: 20130108
  Transmission Date: 20140127
  Serious: Yes (Other)
  Sender: FDA-Public Use
  Company Number: US-RB-044375-12

PATIENT
  Age: 23 None
  Sex: Female

DRUGS (7)
  1. SUBUTEX [Suspect]
     Indication: DRUG DEPENDENCE
     Dosage: DOSING DETAILS UNKNOWN
     Route: 065
  2. SUBOXONE [Suspect]
     Indication: DRUG DEPENDENCE
     Dosage: VARIED DOSING, SEE NARRATIVE
     Route: 060
     Dates: start: 2011
  3. SUBOXONE FILM [Suspect]
     Indication: PRODUCT USED FOR UNKNOWN INDICATION
     Dosage: SUBOXONE FILM; DOSING DETAILS NOT PROVIDED
     Route: 065
  4. GENERIC BUPRENORPHINE [Suspect]
     Indication: DRUG DEPENDENCE
     Dosage: 8 MG TO 12 MG DAILY
     Route: 060
     Dates: start: 2012
  5. RITALIN [Concomitant]
     Indication: ATTENTION DEFICIT/HYPERACTIVITY DISORDER
     Route: 065
  6. KLONOPIN [Concomitant]
     Indication: POST-TRAUMATIC STRESS DISORDER
     Dosage: 1 MG/ONE TO TWO TABLETS DAILY, AS NEEDED
     Route: 065
  7. PRENATAL VITAMINS [Concomitant]
     Indication: PREGNANCY
     Dosage: ONE TABLET DAILY
     Route: 065

REACTIONS (5)
  - Lower limb fracture [Not Recovered/Not Resolved]
  - Road traffic accident [Recovered/Resolved]
  - Substance abuse [Not Recovered/Not Resolved]
  - Wrong technique in drug usage process [Unknown]
  - Exposure during pregnancy [Recovered/Resolved]
